FAERS Safety Report 17356810 (Version 1)
Quarter: 2020Q1

REPORT INFORMATION
  Report Type: Spontaneous
  Country: US (occurrence: US)
  Receive Date: 20200131
  Receipt Date: 20200131
  Transmission Date: 20200409
  Serious: Yes (Hospitalization, Other)
  Sender: FDA-Public Use
  Company Number: US-NOVOPROD-707649

PATIENT
  Age: 37 Year
  Sex: Female

DRUGS (14)
  1. CETIRIZINE HYDROCHLORIDE. [Concomitant]
     Active Substance: CETIRIZINE HYDROCHLORIDE
     Indication: SEASONAL ALLERGY
     Dosage: 10 MG, QD
     Route: 048
     Dates: start: 201603
  2. FERROUS GLUCONATE [Concomitant]
     Active Substance: FERROUS GLUCONATE
     Indication: ANAEMIA
     Dosage: 240 MG, TID
     Route: 048
     Dates: start: 20161103
  3. MELATONIN [Concomitant]
     Active Substance: MELATONIN
     Indication: INSOMNIA
     Dosage: 5 MG, QD
     Route: 048
     Dates: start: 20170529, end: 20170604
  4. VITAMIN B12 [Concomitant]
     Active Substance: CYANOCOBALAMIN
     Indication: FATIGUE
     Dosage: 1000 ?G, QD
     Route: 048
     Dates: start: 20170203
  5. BIOTIN [Concomitant]
     Active Substance: BIOTIN
     Indication: PROPHYLAXIS
     Dosage: 2000 ?G, QD
     Route: 048
     Dates: start: 20161230
  6. MELATONIN [Concomitant]
     Active Substance: MELATONIN
     Dosage: 10 MG, QD
     Route: 048
     Dates: start: 20170605
  7. ELAGOLIX [Suspect]
     Active Substance: ELAGOLIX
     Indication: UTERINE LEIOMYOMA
     Dosage: 600 MG, QD
     Route: 065
     Dates: start: 20170525, end: 20171110
  8. DOCUSATE [Concomitant]
     Active Substance: DOCUSATE
     Indication: CONSTIPATION PROPHYLAXIS
     Dosage: 100 MG, PRN
     Route: 048
     Dates: start: 20161103
  9. FLUOXETINE [Concomitant]
     Active Substance: FLUOXETINE HYDROCHLORIDE
     Indication: MOOD SWINGS
     Dosage: 20 MG, QD
     Route: 048
     Dates: start: 20170315
  10. VITAMIN C ACID [Concomitant]
     Active Substance: ASCORBIC ACID
     Indication: PROPHYLAXIS
     Dosage: 500 MG, QD
     Route: 048
     Dates: start: 20170203
  11. CLOBETASOL 0.05% [Concomitant]
     Active Substance: CLOBETASOL
     Indication: DRY SKIN
     Dosage: 0.05% TOPICALLY BID
     Route: 061
     Dates: start: 20171023
  12. FOLIC ACID. [Concomitant]
     Active Substance: FOLIC ACID
     Indication: PROPHYLAXIS
     Dosage: 400 ?G, QD
     Route: 048
     Dates: start: 2015
  13. ACTIVELLA [Suspect]
     Active Substance: ESTRADIOL\NORETHINDRONE ACETATE
     Indication: UTERINE LEIOMYOMA
     Dosage: UNK
     Route: 048
     Dates: start: 20170525, end: 20171110
  14. HYDROCORTISONE. [Concomitant]
     Active Substance: HYDROCORTISONE
     Indication: DRY SKIN
     Dosage: 1% TOPICALLY AS REQUIRED
     Route: 061
     Dates: start: 20170301

REACTIONS (3)
  - Menorrhagia [Recovered/Resolved]
  - Endometriosis [Unknown]
  - Off label use [Unknown]

NARRATIVE: CASE EVENT DATE: 20170525
